FAERS Safety Report 17025064 (Version 1)
Quarter: 2019Q4

REPORT INFORMATION
  Report Type: Spontaneous
  Country: US (occurrence: US)
  Receive Date: 20191113
  Receipt Date: 20191113
  Transmission Date: 20200122
  Serious: No
  Sender: FDA-Public Use
  Company Number: US-009507513-1911USA003964

PATIENT
  Age: 35 Year
  Sex: Female

DRUGS (1)
  1. PREGNYL [Suspect]
     Active Substance: CHORIOGONADOTROPIN ALFA
     Indication: INFERTILITY FEMALE
     Dosage: 10ML/VL, 1000 UNITS, ONCE
     Route: 030
     Dates: start: 201910

REACTIONS (1)
  - Premenstrual syndrome [Unknown]

NARRATIVE: CASE EVENT DATE: 201910
